FAERS Safety Report 16028342 (Version 1)
Quarter: 2019Q1

REPORT INFORMATION
  Report Type: Report from Study
  Country: US (occurrence: US)
  Receive Date: 20190304
  Receipt Date: 20190304
  Transmission Date: 20190418
  Serious: Yes (Other)
  Sender: FDA-Public Use
  Company Number: US-ROCHE-2271932

PATIENT

DRUGS (3)
  1. CARBOPLATIN. [Suspect]
     Active Substance: CARBOPLATIN
     Indication: OVARIAN EPITHELIAL CANCER
     Route: 033
  2. BEVACIZUMAB. [Suspect]
     Active Substance: BEVACIZUMAB
     Indication: OVARIAN EPITHELIAL CANCER
     Route: 042
  3. PACLITAXEL. [Suspect]
     Active Substance: PACLITAXEL
     Indication: OVARIAN EPITHELIAL CANCER
     Route: 033

REACTIONS (13)
  - Diarrhoea [Unknown]
  - Hypomagnesaemia [Unknown]
  - Anaemia [Unknown]
  - Hypocalcaemia [Unknown]
  - Abdominal pain [Unknown]
  - Fatigue [Unknown]
  - Infection [Unknown]
  - Thrombocytopenia [Unknown]
  - Dehydration [Unknown]
  - Hypokalaemia [Unknown]
  - Hyponatraemia [Unknown]
  - Neutropenia [Unknown]
  - Obstruction [Unknown]
